FAERS Safety Report 6663819-2 (Version None)
Quarter: 2010Q2

REPORT INFORMATION
  Report Type: 
  Country: None (occurrence: None)
  Receive Date: 20100401
  Receipt Date: 20100323
  Transmission Date: 20101027
  Serious: Yes (Other)
  Sender: FDA-Public Use
  Company Number: US-JNJFOC-20100306642

PATIENT
  Sex: Female
  Weight: 78.93 kg

DRUGS (3)
  1. REMICADE [Suspect]
     Indication: COLITIS ULCERATIVE
     Route: 042
  2. DILAUDID [Concomitant]
     Indication: PAIN
  3. VALIUM [Concomitant]
     Indication: ANXIETY

REACTIONS (3)
  - AMENORRHOEA [None]
  - BRONCHITIS [None]
  - WEIGHT INCREASED [None]
